FAERS Safety Report 15760222 (Version 1)
Quarter: 2018Q4

REPORT INFORMATION
  Report Type: Spontaneous
  Country: HR (occurrence: HR)
  Receive Date: 20181226
  Receipt Date: 20181226
  Transmission Date: 20190205
  Serious: Yes (Other)
  Sender: FDA-Public Use
  Company Number: HR-PFIZER INC-2018523613

PATIENT
  Age: 50 Year
  Sex: Male
  Weight: 40 kg

DRUGS (3)
  1. VARGATEF [Suspect]
     Active Substance: NINTEDANIB
     Dosage: 400 MG, 1X/DAY
  2. VARGATEF [Suspect]
     Active Substance: NINTEDANIB
     Indication: NON-SMALL CELL LUNG CANCER
     Dosage: 500 MG, 1X/DAY
  3. DOCETAXEL. [Suspect]
     Active Substance: DOCETAXEL
     Dosage: 75 MG/M2, UNK

REACTIONS (6)
  - Thrombocytopenia [Unknown]
  - Neoplasm progression [Unknown]
  - Fatigue [Recovering/Resolving]
  - Asthenia [Recovering/Resolving]
  - Polyneuropathy [Unknown]
  - Aspartate aminotransferase increased [Unknown]

NARRATIVE: CASE EVENT DATE: 201808
